FAERS Safety Report 19387285 (Version 5)
Quarter: 2021Q3

REPORT INFORMATION
  Report Type: Report from Study
  Country: US (occurrence: US)
  Receive Date: 20210608
  Receipt Date: 20210827
  Transmission Date: 20211014
  Serious: Yes (Hospitalization, Other)
  Sender: FDA-Public Use
  Company Number: US-SA-2021SA186388

PATIENT
  Age: 81 Year
  Sex: Female

DRUGS (4)
  1. DUPILUMAB [Suspect]
     Active Substance: DUPILUMAB
     Dosage: 300 MG, QOW
     Route: 058
     Dates: start: 202104, end: 2021
  2. DUPILUMAB [Suspect]
     Active Substance: DUPILUMAB
     Dosage: 300 MG, QOW
     Route: 058
     Dates: start: 20210622
  3. DUPILUMAB [Suspect]
     Active Substance: DUPILUMAB
     Indication: ASTHMA
     Dosage: 600 MG, 1X
     Route: 058
  4. XOLAIR [Concomitant]
     Active Substance: OMALIZUMAB
     Dosage: UNK

REACTIONS (13)
  - SARS-CoV-2 test [Recovering/Resolving]
  - Pneumonia [Recovering/Resolving]
  - COVID-19 [Recovering/Resolving]
  - Herpes zoster [Recovering/Resolving]
  - Feeling abnormal [Unknown]
  - Productive cough [Unknown]
  - Intentional dose omission [Unknown]
  - Hip fracture [Unknown]
  - Atrial fibrillation [Unknown]
  - Cough [Unknown]
  - Fatigue [Recovering/Resolving]
  - Sputum discoloured [Unknown]
  - Product use issue [Unknown]

NARRATIVE: CASE EVENT DATE: 2021
